FAERS Safety Report 9295626 (Version 3)
Quarter: 2013Q4

REPORT INFORMATION
  Report Type: Report from Study
  Country: US (occurrence: US)
  Receive Date: 20130517
  Receipt Date: 20131115
  Transmission Date: 20140711
  Serious: Yes (Death)
  Sender: FDA-Public Use
  Company Number: US-SANOFI-AVENTIS-2013SA049242

PATIENT
  Age: 54 Year
  Sex: Male

DRUGS (4)
  1. AUBAGIO [Suspect]
     Indication: MULTIPLE SCLEROSIS
     Route: 048
     Dates: start: 20130126, end: 20130506
  2. XANAX [Concomitant]
     Indication: ANXIETY
     Route: 048
     Dates: end: 20130506
  3. LYRICA [Concomitant]
     Indication: CONVULSION
     Route: 048
     Dates: end: 20130506
  4. LYRICA [Concomitant]
     Indication: ANXIETY
     Route: 048
     Dates: end: 20130506

REACTIONS (1)
  - Completed suicide [Fatal]
